FAERS Safety Report 5800908-6 (Version None)
Quarter: 2008Q3

REPORT INFORMATION
  Report Type: 
  Country: None (occurrence: None)
  Receive Date: 20080701
  Receipt Date: 20070305
  Transmission Date: 20090109
  Serious: Yes (Disabling)
  Sender: FDA-Public Use
  Company Number: TPH-00061

PATIENT
  Age: 24 Year
  Sex: Female

DRUGS (1)
  1. TRIQUILAR (21) [Suspect]
     Indication: ORAL CONTRACEPTION
     Dosage: ORAL
     Route: 048
     Dates: start: 20000101, end: 20051101

REACTIONS (1)
  - INFERTILITY [None]
